FAERS Safety Report 8823142 (Version 1)
Quarter: 2012Q4

REPORT INFORMATION
  Report Type: 
  Country: TR (occurrence: TR)
  Receive Date: 20121003
  Receipt Date: 20121003
  Transmission Date: 20130627
  Serious: Yes (Other)
  Sender: FDA-Public Use
  Company Number: TR-SANOFI-AVENTIS-2012SA071079

PATIENT
  Age: 48 Year
  Sex: Female
  Weight: 75 kg

DRUGS (12)
  1. LEFLUNOMIDE [Suspect]
     Indication: RHEUMATOID ARTHRITIS
     Route: 065
     Dates: start: 2007, end: 201202
  2. LEFLUNOMIDE [Suspect]
     Indication: RHEUMATOID ARTHRITIS
     Route: 065
     Dates: start: 20120302, end: 20120430
  3. TOCILIZUMAB [Suspect]
     Indication: DRUG USE FOR UNKNOWN INDICATION
     Dosage: 8mg/kg, 1 in 4week
     Route: 042
     Dates: start: 20111209
  4. TOCILIZUMAB [Suspect]
     Indication: DRUG USE FOR UNKNOWN INDICATION
     Route: 042
     Dates: start: 20120106
  5. TOCILIZUMAB [Suspect]
     Indication: DRUG USE FOR UNKNOWN INDICATION
     Dosage: dose- 400 mg and 3X80 mg vials
     Route: 042
     Dates: start: 20120203, end: 20120430
  6. ATORVASTATIN [Suspect]
     Indication: DRUG USE FOR UNKNOWN INDICATION
     Route: 065
     Dates: start: 20120302, end: 20120430
  7. PLAQUENIL [Concomitant]
     Dates: start: 2009
  8. FLANTADIN [Concomitant]
     Dates: start: 2006
  9. INH [Concomitant]
     Dates: start: 20111110
  10. BELOC-ZOK [Concomitant]
     Dates: start: 2005
  11. LANSOR [Concomitant]
     Dates: start: 2006
  12. RANTUDIL [Concomitant]
     Dates: start: 2009

REACTIONS (4)
  - Alanine aminotransferase increased [Recovered/Resolved]
  - Blood cholesterol increased [Not Recovered/Not Resolved]
  - Low density lipoprotein increased [Not Recovered/Not Resolved]
  - Aspartate aminotransferase increased [Recovered/Resolved]
